FAERS Safety Report 11079051 (Version 4)
Quarter: 2015Q4

REPORT INFORMATION
  Report Type: Spontaneous
  Country: JP (occurrence: JP)
  Receive Date: 20150430
  Receipt Date: 20151230
  Transmission Date: 20160304
  Serious: Yes (Hospitalization, Other)
  Sender: FDA-Public Use
  Company Number: JP-009507513-1504JPN020940

PATIENT
  Age: 48 Year
  Sex: Female
  Weight: 62 kg

DRUGS (18)
  1. BERAPROST SODIUM [Concomitant]
     Active Substance: BERAPROST SODIUM
     Indication: PERIPHERAL ARTERIAL OCCLUSIVE DISEASE
     Dosage: 40 MICROGRAM, TID, FORMULATION:POR
     Route: 048
     Dates: start: 2013
  2. PERYCIT [Concomitant]
     Indication: HYPERPHOSPHATAEMIA
     Dosage: 250 MG, TID, FORMULATION:POR
     Route: 048
     Dates: start: 20130903
  3. ALDOMET [Concomitant]
     Active Substance: METHYLDOPA
     Indication: HYPERTENSION
     Dosage: 250 MG, BID, FORMULATION:POR
     Route: 048
     Dates: start: 20140501
  4. PARIET [Concomitant]
     Active Substance: RABEPRAZOLE SODIUM
     Indication: GASTROOESOPHAGEAL REFLUX DISEASE
     Dosage: 10 MG, QD, FORMULATION:POR
     Route: 048
     Dates: start: 2013
  5. JANUVIA [Suspect]
     Active Substance: SITAGLIPTIN PHOSPHATE
     Indication: TYPE 2 DIABETES MELLITUS
     Dosage: 12.5 MG, QD
     Route: 048
     Dates: start: 20140416, end: 20140516
  6. JANUVIA [Suspect]
     Active Substance: SITAGLIPTIN PHOSPHATE
     Indication: TYPE 2 DIABETES MELLITUS
     Dosage: 25 MG, QD
     Route: 048
     Dates: start: 20140517
  7. ARTIST [Concomitant]
     Active Substance: CARVEDILOL
     Indication: HYPERTENSION
     Dosage: 10 MG, QD, FORMULATION:POR
     Route: 048
     Dates: start: 2013
  8. LIVALO [Concomitant]
     Active Substance: PITAVASTATIN CALCIUM
     Indication: HYPERCHOLESTEROLAEMIA
     Dosage: 2 MG, QD, FORMULATION:POR
     Route: 048
     Dates: start: 20130708
  9. MIRCERA [Concomitant]
     Active Substance: METHOXY POLYETHYLENE GLYCOL-EPOETIN BETA
     Indication: NEPHROGENIC ANAEMIA
     Dosage: 50 MICROGRAM, BIM
     Route: 051
     Dates: start: 201307
  10. OXAROL [Concomitant]
     Active Substance: MAXACALCITOL
     Indication: HYPERPARATHYROIDISM SECONDARY
     Dosage: 2.5 MICROGRAM, TIW
     Route: 051
     Dates: start: 2013
  11. ALDACTONE A [Concomitant]
     Active Substance: SPIRONOLACTONE
     Indication: HYPERTENSION
     Dosage: 25 MG, QD, FORMULATION: POR
     Route: 048
     Dates: start: 20140402, end: 20140501
  12. NOVORAPID [Concomitant]
     Active Substance: INSULIN ASPART
     Indication: DIABETES MELLITUS
     Dosage: 20 (UNDER 1000 UNIT), BID
     Route: 051
     Dates: start: 2013
  13. ULCERLMIN [Concomitant]
     Active Substance: SUCRALFATE
     Indication: HYPERPHOSPHATAEMIA
     Dosage: 0.5 G, TID, FORMULATION: FGR
     Route: 048
     Dates: start: 20130703
  14. LACTOMIN [Concomitant]
     Active Substance: LACTOBACILLUS ACIDOPHILUS
     Indication: ENTEROCOLITIS
     Dosage: 12 MG, TID, FORMULATION:POR
     Route: 048
     Dates: start: 2013
  15. AZILVA [Concomitant]
     Active Substance: AZILSARTAN KAMEDOXOMIL
     Indication: HYPERTENSION
     Dosage: 40 MG, QD, FORMULATION: POR
     Route: 048
     Dates: start: 20140220, end: 20140528
  16. ADALAT CC [Concomitant]
     Active Substance: NIFEDIPINE
     Indication: HYPERTENSION
     Dosage: 80 MG DAILY, FORMULATION:POR
     Route: 048
     Dates: start: 20131225
  17. SARPOGRELATE HYDROCHLORIDE [Concomitant]
     Active Substance: SARPOGRELATE
     Indication: PERIPHERAL ARTERIAL OCCLUSIVE DISEASE
     Dosage: 100 MG, TID, FORMULATION:POR
     Route: 048
     Dates: start: 2013
  18. PALUX [Concomitant]
     Active Substance: ALPROSTADIL
     Indication: PERIPHERAL ARTERIAL OCCLUSIVE DISEASE
     Dosage: 10 MICROGRAM, TIW
     Route: 051
     Dates: start: 2013

REACTIONS (2)
  - Mediastinum neoplasm [Unknown]
  - Diabetes mellitus [Recovering/Resolving]

NARRATIVE: CASE EVENT DATE: 20140508
